FAERS Safety Report 12840114 (Version 1)
Quarter: 2016Q4

REPORT INFORMATION
  Report Type: Spontaneous
  Country: US (occurrence: US)
  Receive Date: 20161012
  Receipt Date: 20161012
  Transmission Date: 20170207
  Serious: No
  Sender: FDA-Public Use
  Company Number: US-GLAXOSMITHKLINE-US2016148723

PATIENT
  Age: 75 Year
  Sex: Male

DRUGS (1)
  1. FLONASE [Suspect]
     Active Substance: FLUTICASONE PROPIONATE
     Indication: SINUS DISORDER
     Dosage: UNK
     Dates: start: 20160926

REACTIONS (5)
  - Off label use [Unknown]
  - Pain [Unknown]
  - Sensory disturbance [Unknown]
  - Increased upper airway secretion [Unknown]
  - Ear discomfort [Unknown]
